FAERS Safety Report 24155355 (Version 1)
Quarter: 2024Q3

REPORT INFORMATION
  Report Type: Spontaneous
  Country: US (occurrence: US)
  Receive Date: 20240731
  Receipt Date: 20240731
  Transmission Date: 20241016
  Serious: Yes (Hospitalization)
  Sender: INCYTE
  Company Number: US-INCYTE CORPORATION-2024IN007866

PATIENT

DRUGS (7)
  1. JAKAFI [Suspect]
     Active Substance: RUXOLITINIB
     Indication: Hysterectomy
     Dosage: 5 MILLIGRAM, BID
     Route: 048
  2. JAKAFI [Suspect]
     Active Substance: RUXOLITINIB
     Indication: Cervicectomy
  3. JAKAFI [Suspect]
     Active Substance: RUXOLITINIB
     Indication: Migraine
  4. JAKAFI [Suspect]
     Active Substance: RUXOLITINIB
     Indication: Hormone replacement therapy
  5. JAKAFI [Suspect]
     Active Substance: RUXOLITINIB
     Indication: Bradycardia
  6. JAKAFI [Suspect]
     Active Substance: RUXOLITINIB
     Indication: Thrombocytopenia
  7. JAKAFI [Suspect]
     Active Substance: RUXOLITINIB
     Indication: Arrhythmia

REACTIONS (2)
  - Diarrhoea [Unknown]
  - Off label use [Unknown]
